FAERS Safety Report 6421078-X (Version None)
Quarter: 2009Q4

REPORT INFORMATION
  Report Type: 
  Country: None (occurrence: None)
  Receive Date: 20091028
  Receipt Date: 20091014
  Transmission Date: 20100525
  Serious: Yes (Hospitalization)
  Sender: FDA-Public Use
  Company Number: POMP-1000733

PATIENT
  Age: 6 Year
  Sex: Female
  Weight: 15 kg

DRUGS (7)
  1. MYOZYME [Suspect]
     Indication: GLYCOGEN STORAGE DISEASE TYPE II
     Dosage: 300 MG, Q2W, INTRAVENOUS; 20 MG/KG, Q2W, INTRAVENOUS
     Route: 042
     Dates: start: 20040325
  2. MYOZYME [Suspect]
     Indication: GLYCOGEN STORAGE DISEASE TYPE II
     Dosage: 300 MG, Q2W, INTRAVENOUS; 20 MG/KG, Q2W, INTRAVENOUS
     Route: 042
     Dates: start: 20060601
  3. TYLENOL [Concomitant]
  4. ACTIVASE [Concomitant]
  5. ROCEPHIN [Concomitant]
  6. CLINDAMYCIN HCL [Concomitant]
  7. MORPHINE [Concomitant]

REACTIONS (6)
  - ASPIRATION [None]
  - HYPOVENTILATION [None]
  - MEDICAL DEVICE COMPLICATION [None]
  - PNEUMONIA [None]
  - TACHYCARDIA [None]
  - WHITE BLOOD CELL COUNT INCREASED [None]
